FAERS Safety Report 7815527-X (Version None)
Quarter: 2011Q4

REPORT INFORMATION
  Report Type: 
  Country: None (occurrence: None)
  Receive Date: 20111014
  Receipt Date: 20111007
  Transmission Date: 20120403
  Serious: Yes (Hospitalization)
  Sender: FDA-Public Use
  Company Number: US-CELGENEUS-163-21880-11100999

PATIENT
  Sex: Male

DRUGS (9)
  1. HUMALOG [Concomitant]
     Route: 065
  2. REVLIMID [Suspect]
     Indication: MYELODYSPLASTIC SYNDROME
     Dosage: 10 MILLIGRAM
     Route: 048
     Dates: start: 20110708
  3. VITAMIN B-12 [Concomitant]
     Route: 065
  4. PREVACID [Concomitant]
     Route: 065
  5. DEXAMETHASONE [Concomitant]
     Route: 065
  6. LANTUS [Concomitant]
     Route: 065
  7. PROSCAR [Concomitant]
     Route: 065
  8. VITAMIN B1 TAB [Concomitant]
     Route: 065
  9. METFORMIN HCL [Concomitant]
     Route: 065

REACTIONS (1)
  - MUSCULOSKELETAL DISORDER [None]
